FAERS Safety Report 5243003-X (Version None)
Quarter: 2007Q1

REPORT INFORMATION
  Report Type: 
  Country: None (occurrence: None)
  Receive Date: 20070215
  Receipt Date: 20070207
  Transmission Date: 20070707
  Serious: Yes (Other)
  Sender: FDA-Public Use
  Company Number: 236322

PATIENT
  Age: 23 Year
  Sex: Female
  Weight: 61.7 kg

DRUGS (8)
  1. XOLAIR [Suspect]
     Indication: ASTHMA
     Dosage: Q3W, SUBCUTANEOUS
     Route: 058
     Dates: start: 20060201
  2. ADVAIR DISKUS 100/50 [Concomitant]
  3. SINGULAIR [Concomitant]
  4. CODEINE COUGH SYRUP (ANTITUSSIVE NOS, CODEINE PHOSPHATE) [Concomitant]
  5. XOPENEX [Concomitant]
  6. CLONIDINE [Concomitant]
  7. FLECAINIDE (FLECAINIDE ACETATE) [Concomitant]
  8. CARDIZEM [Concomitant]

REACTIONS (6)
  - ASTHMA [None]
  - DYSPNOEA [None]
  - SYNCOPE [None]
  - TOOTH IMPACTED [None]
  - TOOTHACHE [None]
  - WHEEZING [None]
